FAERS Safety Report 26048799 (Version 1)
Quarter: 2025Q4

REPORT INFORMATION
  Report Type: Spontaneous
  Country: JP (occurrence: JP)
  Receive Date: 20251115
  Receipt Date: 20251115
  Transmission Date: 20260118
  Serious: Yes (Other)
  Sender: ALEXION PHARMACEUTICALS
  Company Number: JP-ASTRAZENECA-202511JPN008743JP

PATIENT
  Age: 72 Year
  Sex: Female
  Weight: 42 kg

DRUGS (1)
  1. TAGRISSO [Suspect]
     Active Substance: OSIMERTINIB
     Indication: Non-small cell lung cancer
     Dosage: UNK
     Route: 065

REACTIONS (9)
  - Pneumonia [Unknown]
  - Malignant pleural effusion [Unknown]
  - Lymphangiosis carcinomatosa [Unknown]
  - Metastases to bone [Unknown]
  - Gastric ulcer [Unknown]
  - Haematemesis [Unknown]
  - Lung opacity [Unknown]
  - Nausea [Unknown]
  - Weight decreased [Unknown]
